FAERS Safety Report 4569367-8 (Version None)
Quarter: 2005Q1

REPORT INFORMATION
  Report Type: 
  Country: None (occurrence: None)
  Receive Date: 20050201
  Receipt Date: 20050118
  Transmission Date: 20050727
  Serious: Yes (Death)
  Sender: FDA-Public Use
  Company Number: 211767

PATIENT
  Age: 62 Year
  Sex: Female
  Weight: 88.4 kg

DRUGS (9)
  1. AVASTIN [Suspect]
     Indication: COLON CANCER METASTATIC
     Dosage: 380 MG, Q2W, INTRAVENOUS
     Route: 042
     Dates: start: 20041103
  2. VITAMIN C (ASCORBIC ACID) [Concomitant]
  3. CALCIUM (CALCIUM NOS) [Concomitant]
  4. ASA (ASPIRIN0 [Concomitant]
  5. OXALIPLATIN (OXALIPLATIN) [Concomitant]
  6. LEUCOVORIN CALCIUM [Concomitant]
  7. FLUOROURACIL [Concomitant]
  8. PACKED RED BLOOD CELLS (BLOOD CELLS, RED) [Concomitant]
  9. KCL (POTASSIUM CHLORIDE) [Concomitant]

REACTIONS (3)
  - ABDOMINAL PAIN [None]
  - AORTIC ANEURYSM RUPTURE [None]
  - COMA [None]
